FAERS Safety Report 11082381 (Version 1)
Quarter: 2015Q2

REPORT INFORMATION
  Report Type: Spontaneous
  Country: FR (occurrence: FR)
  Receive Date: 20150501
  Receipt Date: 20150501
  Transmission Date: 20150821
  Serious: Yes (Death, Life-Threatening, Hospitalization)
  Sender: FDA-Public Use
  Company Number: FR-ELI_LILLY_AND_COMPANY-FR201504008992

PATIENT
  Age: 44 Year
  Sex: Female

DRUGS (9)
  1. ISOPTIN [Concomitant]
     Active Substance: VERAPAMIL HYDROCHLORIDE
  2. EFIENT [Suspect]
     Active Substance: PRASUGREL HYDROCHLORIDE
     Indication: ACUTE CORONARY SYNDROME
     Dosage: 60 MG, SINGLE
     Route: 048
     Dates: start: 20150215, end: 20150215
  3. HEPARIN SODIUM. [Suspect]
     Active Substance: HEPARIN SODIUM
     Indication: ACUTE CORONARY SYNDROME
     Dosage: 3000 IU, UNK
     Route: 042
     Dates: start: 20150215, end: 20150215
  4. TRANXENE T-TAB [Concomitant]
     Active Substance: CLORAZEPATE DIPOTASSIUM
  5. IBUPROFEN. [Suspect]
     Active Substance: IBUPROFEN
     Indication: PAIN
     Dosage: UNK
     Route: 048
     Dates: start: 20150215, end: 20150215
  6. MORPHINE [Concomitant]
     Active Substance: MORPHINE
  7. INTEGRILIN [Suspect]
     Active Substance: EPTIFIBATIDE
     Indication: ANGIOPLASTY
     Dosage: UNK
     Route: 042
     Dates: start: 20150215, end: 20150215
  8. ASPIRIN                            /00002701/ [Suspect]
     Active Substance: ASPIRIN
     Indication: ACUTE CORONARY SYNDROME
     Dosage: 250 MG, UNK
     Route: 065
     Dates: start: 20150215, end: 20150215
  9. RISORDAN                           /00110502/ [Concomitant]

REACTIONS (3)
  - Cerebral haematoma [Fatal]
  - Subarachnoid haemorrhage [Unknown]
  - Decerebration [Unknown]

NARRATIVE: CASE EVENT DATE: 20150215
